FAERS Safety Report 4440519-0 (Version None)
Quarter: 2004Q3

REPORT INFORMATION
  Report Type: 
  Country: None (occurrence: None)
  Receive Date: 20040903
  Receipt Date: 20040825
  Transmission Date: 20050211
  Serious: Yes (Hospitalization, Disabling)
  Sender: FDA-Public Use
  Company Number: SE-JNJFOC-20040203511

PATIENT
  Age: 68 Year
  Sex: Male

DRUGS (7)
  1. REMICADE [Suspect]
     Indication: RHEUMATOID ARTHRITIS
     Route: 042
  2. METHOTREXATE [Suspect]
     Route: 049
  3. METHOTREXATE [Suspect]
     Indication: RHEUMATOID ARTHRITIS
     Route: 049
  4. CALCICHEW [Concomitant]
  5. ORUDIS RETARD [Concomitant]
  6. FOLACIN [Concomitant]
  7. FOLACIN [Concomitant]

REACTIONS (7)
  - BALANCE DISORDER [None]
  - DEAFNESS [None]
  - EXANTHEM [None]
  - LOSS OF CONSCIOUSNESS [None]
  - MENINGITIS PNEUMOCOCCAL [None]
  - PLATELET COUNT DECREASED [None]
  - PNEUMOCOCCAL SEPSIS [None]
